FAERS Safety Report 17050770 (Version 2)
Quarter: 2019Q4

REPORT INFORMATION
  Report Type: Report from Study
  Country: FR (occurrence: FR)
  Receive Date: 20191119
  Receipt Date: 20191210
  Transmission Date: 20200122
  Serious: Yes (Hospitalization)
  Sender: FDA-Public Use
  Company Number: FR-ROCHE-2460084

PATIENT
  Age: 74 Year
  Sex: Male

DRUGS (6)
  1. ATEZOLIZUMAB. [Suspect]
     Active Substance: ATEZOLIZUMAB
     Indication: NEOPLASM
     Dosage: ON 14/OCT/2019, AT 13:47, HE RECEIVED THE MOST RECENT DOSE OF THE RO6874281 (FAP IL2V MAB) PRIOR TO
     Route: 042
     Dates: start: 20190923
  2. LEXOMIL [Concomitant]
     Active Substance: BROMAZEPAM
  3. RO6874281 (FAP IL2V MAB) [Suspect]
     Active Substance: SIMLUKAFUSP ALFA
     Indication: NEOPLASM
     Dosage: ON 14/OCT/2019, AT 15:30 HE RECEIVED THE MOST RECENT DOSE OF THE RO6874281 (FAP IL2V MAB) PRIOR TO T
     Route: 042
     Dates: start: 20190923
  4. ACUPAN [Concomitant]
     Active Substance: NEFOPAM HYDROCHLORIDE
     Indication: PAIN
  5. ENALAPRIL [Concomitant]
     Active Substance: ENALAPRIL
     Indication: HYPERTENSION
  6. LEVOTHYROX [Concomitant]
     Active Substance: LEVOTHYROXINE
     Indication: HYPOTHYROIDISM

REACTIONS (1)
  - General physical health deterioration [Not Recovered/Not Resolved]

NARRATIVE: CASE EVENT DATE: 20191028
